FAERS Safety Report 7423363-1 (Version None)
Quarter: 2011Q2

REPORT INFORMATION
  Report Type: 
  Country: None (occurrence: None)
  Receive Date: 20110419
  Receipt Date: 20110406
  Transmission Date: 20111010
  Serious: Yes (Hospitalization)
  Sender: FDA-Public Use
  Company Number: US-ACTELION-A-NJ2011-47295

PATIENT

DRUGS (5)
  1. CALCIUM CHANNEL BLOCKERS [Concomitant]
  2. PLAVIX [Concomitant]
  3. TADALAFIL [Concomitant]
  4. ASPIRIN [Concomitant]
  5. TRACLEER [Suspect]
     Indication: PULMONARY ARTERIAL HYPERTENSION
     Dosage: UNK
     Route: 048
     Dates: start: 20101229

REACTIONS (2)
  - BLOOD GLUCOSE ABNORMAL [None]
  - RENAL DISORDER [None]
